FAERS Safety Report 21179234 (Version 1)
Quarter: 2022Q3

REPORT INFORMATION
  Report Type: Spontaneous
  Country: US (occurrence: None)
  Receive Date: 20220805
  Receipt Date: 20220805
  Transmission Date: 20221027
  Serious: Yes (Hospitalization)
  Sender: FDA-Public Use
  Company Number: None

PATIENT
  Age: 66 Year
  Sex: Male

DRUGS (1)
  1. DEFERASIROX [Suspect]
     Active Substance: DEFERASIROX
     Indication: Laboratory test abnormal
     Dosage: 180MG DAILY ORAL
     Route: 048
     Dates: start: 20220610

REACTIONS (2)
  - Therapy interrupted [None]
  - Bacterial infection [None]

NARRATIVE: CASE EVENT DATE: 20220722
